FAERS Safety Report 8662755 (Version 4)
Quarter: 2013Q4

REPORT INFORMATION
  Report Type: Spontaneous
  Country: US (occurrence: US)
  Receive Date: 20120712
  Receipt Date: 20131101
  Transmission Date: 20140711
  Serious: Yes (Hospitalization, Other)
  Sender: FDA-Public Use
  Company Number: US-009507513-2011SP051275

PATIENT
  Age: 33 Year
  Sex: Female
  Weight: 58.97 kg

DRUGS (5)
  1. NUVARING [Suspect]
     Indication: ACNE CYSTIC
     Dates: start: 200808, end: 20081121
  2. FLONASE [Concomitant]
     Indication: HYPERSENSITIVITY
     Dosage: TAKEN ON A REGULAR BASIS SINCE AGE 13
  3. VITAMINS (UNSPECIFIED) [Concomitant]
     Indication: GENERAL PHYSICAL CONDITION
     Dosage: 1 DF, QD
     Dates: start: 200809
  4. ASCORBIC ACID [Concomitant]
     Indication: GENERAL PHYSICAL CONDITION
     Dosage: 1 PACKET (1000 MG) DAILY
     Dates: start: 200809
  5. [COMPOSITION UNSPECIFIED] [Concomitant]
     Indication: CONTRACEPTION
     Dates: start: 2003

REACTIONS (5)
  - Pulmonary embolism [Unknown]
  - Pelvic venous thrombosis [Unknown]
  - Off label use [Unknown]
  - Back pain [Unknown]
  - Muscle spasms [Unknown]
